FAERS Safety Report 22531579 (Version 1)
Quarter: 2023Q2

REPORT INFORMATION
  Report Type: Spontaneous
  Country: SE (occurrence: SE)
  Receive Date: 20230607
  Receipt Date: 20230607
  Transmission Date: 20230722
  Serious: Yes (Other)
  Sender: FDA-Public Use
  Company Number: SE-BAYER-2023A077908

PATIENT
  Sex: Female

DRUGS (1)
  1. MIRENA [Suspect]
     Active Substance: LEVONORGESTREL
     Dosage: 20?G/DAY
     Route: 015

REACTIONS (10)
  - Suicidal ideation [None]
  - Genital haemorrhage [None]
  - Pain [None]
  - Headache [None]
  - Nausea [None]
  - Vomiting [None]
  - Dizziness [None]
  - Depression [None]
  - Adnexa uteri pain [None]
  - Acne [None]
